FAERS Safety Report 6425427-8 (Version None)
Quarter: 2009Q4

REPORT INFORMATION
  Report Type: 
  Country: None (occurrence: None)
  Receive Date: 20091030
  Receipt Date: 20090406
  Transmission Date: 20100525
  Serious: Yes (Hospitalization, Other)
  Sender: FDA-Public Use
  Company Number: CTI_01007_2009

PATIENT
  Sex: Female
  Weight: 63.5036 kg

DRUGS (3)
  1. SPECTRACEF [Suspect]
     Indication: SINUSITIS
     Dosage: (400 MG (1 EVERY 12 HOURS))
     Dates: start: 20090325, end: 20090329
  2. YASMIN [Concomitant]
  3. ADVIL LIQUI-GELS [Concomitant]

REACTIONS (5)
  - CHILLS [None]
  - COLITIS [None]
  - PRODUCT QUALITY ISSUE [None]
  - PYREXIA [None]
  - VOMITING [None]
